FAERS Safety Report 7509822-1 (Version None)
Quarter: 2011Q2

REPORT INFORMATION
  Report Type: 
  Country: None (occurrence: None)
  Receive Date: 20110527
  Receipt Date: 20110518
  Transmission Date: 20111010
  Serious: Yes (Other)
  Sender: FDA-Public Use
  Company Number: A0927956A

PATIENT
  Sex: Female
  Weight: 104.5 kg

DRUGS (7)
  1. BECLOMETHASONE DIPROPIONATE [Suspect]
     Dosage: 2PUFF TWICE PER DAY
     Route: 045
  2. ALBUTEROL [Suspect]
     Route: 065
  3. NEBULIZER [Concomitant]
     Indication: ASTHMA
  4. ANTI-INFLAMMATORY [Concomitant]
     Indication: ASTHMA
  5. FLOVENT [Suspect]
     Dosage: 2PUFF TWICE PER DAY
     Route: 065
  6. CPAP [Suspect]
     Route: 045
  7. ADVAIR DISKUS 100/50 [Concomitant]
     Indication: ASTHMA
     Dosage: 1PUFF TWICE PER DAY
     Route: 055
     Dates: start: 20110518

REACTIONS (19)
  - PHARYNGITIS STREPTOCOCCAL [None]
  - SLEEP APNOEA SYNDROME [None]
  - COUGH [None]
  - INCREASED UPPER AIRWAY SECRETION [None]
  - FOREIGN BODY [None]
  - ASTHMA [None]
  - NASAL CONGESTION [None]
  - DYSPNOEA [None]
  - RHINORRHOEA [None]
  - MUCOSAL DISCOLOURATION [None]
  - OROPHARYNGEAL PAIN [None]
  - PAIN [None]
  - THROAT IRRITATION [None]
  - PRODUCTIVE COUGH [None]
  - SWOLLEN TONGUE [None]
  - LACRIMATION INCREASED [None]
  - PYREXIA [None]
  - EPISTAXIS [None]
  - MIDDLE INSOMNIA [None]
